FAERS Safety Report 23755668 (Version 2)
Quarter: 2024Q2

REPORT INFORMATION
  Report Type: Spontaneous
  Country: JP (occurrence: JP)
  Receive Date: 20240418
  Receipt Date: 20240426
  Transmission Date: 20240716
  Serious: Yes (Other)
  Sender: FDA-Public Use
  Company Number: JP-002147023-NVSJ2024JP004793

PATIENT
  Age: 47 Year
  Sex: Male

DRUGS (8)
  1. VOLTAREN [Suspect]
     Active Substance: DICLOFENAC SODIUM
     Indication: Neuralgia
     Dosage: 25 MG
     Route: 048
  2. DICLOFENAC SODIUM [Suspect]
     Active Substance: DICLOFENAC\DICLOFENAC SODIUM
     Indication: Neuralgia
     Dosage: 50 MG
     Route: 054
  3. LORCAM [Concomitant]
     Indication: Neuralgia
     Dosage: UNK
     Route: 065
  4. NEUROTROPIN [Concomitant]
     Active Substance: NEUROTROPIN
     Indication: Neuralgia
     Dosage: UNK
     Route: 065
  5. TRAMCET [Concomitant]
     Active Substance: ACETAMINOPHEN\TRAMADOL
     Indication: Neuralgia
     Dosage: UNK
     Route: 065
  6. LYRICA [Concomitant]
     Active Substance: PREGABALIN
     Indication: Neuralgia
     Dosage: UNK
     Route: 065
  7. TIZANIDINE [Concomitant]
     Active Substance: TIZANIDINE
     Indication: Neuralgia
     Dosage: UNK
     Route: 065
  8. HYPEN [Concomitant]
     Indication: Neuralgia
     Dosage: UNK
     Route: 065

REACTIONS (3)
  - Loss of consciousness [Unknown]
  - Pain [Not Recovered/Not Resolved]
  - Therapeutic product effect incomplete [Unknown]

NARRATIVE: CASE EVENT DATE: 20240416
